FAERS Safety Report 24699485 (Version 1)
Quarter: 2024Q4

REPORT INFORMATION
  Report Type: Spontaneous
  Country: CN (occurrence: CN)
  Receive Date: 20241205
  Receipt Date: 20241205
  Transmission Date: 20250114
  Serious: Yes (Hospitalization, Other)
  Sender: BAXTER
  Company Number: None

PATIENT
  Age: 92 Year
  Sex: Male
  Weight: 57 kg

DRUGS (10)
  1. CYCLOPHOSPHAMIDE [Suspect]
     Active Substance: CYCLOPHOSPHAMIDE
     Indication: Diffuse large B-cell lymphoma stage IV
     Dosage: 1.2 G, ONE TIME IN ONE DAY, DILUTED WITH 500 ML OF SODIUM CHLORIDE, REGIMEN WAS DISCONTINUED LATER
     Route: 041
     Dates: start: 20241031, end: 20241031
  2. RITUXIMAB [Suspect]
     Active Substance: RITUXIMAB
     Indication: Diffuse large B-cell lymphoma stage IV
     Dosage: 600 MG, ONE TIME IN ONE DAY, DILUTED WITH 500 ML OF SODIUM CHLORIDE, REGIMEN WAS DISCONTINUED LATER
     Route: 041
     Dates: start: 20241030, end: 20241030
  3. RITUXIMAB [Suspect]
     Active Substance: RITUXIMAB
     Dosage: 100 MG, ONE TIME IN ONE DAY, DILUTED WITH 100 ML OF SODIUM CHLORIDE, REGIMEN WAS DISCONTINUED LATER
     Route: 041
     Dates: start: 20241030, end: 20241030
  4. PIRARUBICIN HYDROCHLORIDE [Suspect]
     Active Substance: PIRARUBICIN HYDROCHLORIDE
     Indication: Diffuse large B-cell lymphoma stage IV
     Dosage: 80 MG, ONE TIME IN ONE DAY, DILUTED WITH 250 ML OF GLUCOSE, REGIMEN WAS DISCONTINUED LATER
     Route: 041
     Dates: start: 20241031, end: 20241031
  5. VINCRISTINE SULFATE [Suspect]
     Active Substance: VINCRISTINE SULFATE
     Indication: Diffuse large B-cell lymphoma stage IV
     Dosage: 2 MG, ONE TIME IN ONE DAY, DILUTED WITH 100 ML OF SODIUM CHLORIDE, REGIMEN WAS DISCONTINUED LATER
     Route: 041
     Dates: start: 20241031, end: 20241031
  6. SODIUM CHLORIDE [Suspect]
     Active Substance: SODIUM CHLORIDE
     Indication: Medication dilution
     Dosage: 100 ML, ONE TIME IN ONE DAY, USED TO DILUTE 100 MG OF RITUXIMAB, REGIMEN WAS DISCONTINUED LATER
     Route: 041
     Dates: start: 20241030, end: 20241030
  7. SODIUM CHLORIDE [Suspect]
     Active Substance: SODIUM CHLORIDE
     Dosage: 100 ML, ONE TIME IN ONE DAY, USED TO DILUTE 2 MG OF VINCRISTINE SULFATE, REGIMEN WAS DISCONTINUED LA
     Route: 041
     Dates: start: 20241031, end: 20241031
  8. SODIUM CHLORIDE [Suspect]
     Active Substance: SODIUM CHLORIDE
     Dosage: 500 ML, ONE TIME IN ONE DAY, USED TO DILUTE 600 MG OF RITUXIMAB, REGIMEN WAS DISCONTINUED LATER
     Route: 041
     Dates: start: 20241030, end: 20241030
  9. SODIUM CHLORIDE [Suspect]
     Active Substance: SODIUM CHLORIDE
     Dosage: 500 ML, ONE TIME IN ONE DAY, USED TO DILUTE 1.2 G OF CYCLOPHOSPHAMIDE, REGIMEN WAS DISCONTINUED LATE
     Route: 041
     Dates: start: 20241031, end: 20241031
  10. DEXTROSE [Suspect]
     Active Substance: DEXTROSE MONOHYDRATE
     Indication: Medication dilution
     Dosage: 250 ML, ONE TIME IN ONE DAY, USED TO DILUTE 80 MG OF PIRARUBICIN HYDROCHLORIDE, REGIMEN WAS DISCONTI
     Route: 041
     Dates: start: 20241031, end: 20241031

REACTIONS (4)
  - Condition aggravated [Unknown]
  - Diffuse large B-cell lymphoma stage IV [Unknown]
  - White blood cell count decreased [Recovering/Resolving]
  - Neutrophil count decreased [Recovering/Resolving]

NARRATIVE: CASE EVENT DATE: 20241113
